FAERS Safety Report 5847433-4 (Version None)
Quarter: 2008Q3

REPORT INFORMATION
  Report Type: 
  Country: None (occurrence: None)
  Receive Date: 20080815
  Receipt Date: 20080807
  Transmission Date: 20090109
  Serious: Yes (Hospitalization)
  Sender: FDA-Public Use
  Company Number: US-ABBOTT-08P-163-0469408-00

PATIENT
  Sex: Female
  Weight: 44.038 kg

DRUGS (9)
  1. HUMIRA [Suspect]
     Indication: CROHN'S DISEASE
     Dosage: FOUR INJECTIONS, ONE TIME
     Dates: start: 20080701, end: 20080701
  2. HUMIRA [Suspect]
     Dosage: TWO INJECTIONS, ONE TIME
     Dates: start: 20080701, end: 20080701
  3. HUMIRA [Suspect]
     Dosage: ONE INJECTION EVERY TWO WEEKS
  4. PREDNISONE TAB [Concomitant]
     Indication: CROHN'S DISEASE
     Route: 048
     Dates: start: 20080701
  5. PREDNISONE TAB [Concomitant]
     Route: 048
  6. METOPROLOL [Concomitant]
     Indication: HEART VALVE INCOMPETENCE
     Route: 048
     Dates: start: 20060101
  7. AMLODIPINE/BENAZ [Concomitant]
     Indication: HEART VALVE INCOMPETENCE
     Route: 048
     Dates: start: 20060101
  8. GLUCOSAMINE W/CHONDROITIN SULFATE [Concomitant]
     Indication: BACK DISORDER
     Route: 048
     Dates: start: 20080101
  9. ZINC [Concomitant]
     Indication: DRUG USE FOR UNKNOWN INDICATION
     Route: 048
     Dates: start: 20080401

REACTIONS (3)
  - DEHYDRATION [None]
  - DIARRHOEA [None]
  - INJECTION SITE HAEMORRHAGE [None]
